FAERS Safety Report 5675686-4 (Version None)
Quarter: 2008Q1

REPORT INFORMATION
  Report Type: 
  Country: None (occurrence: None)
  Receive Date: 20080321
  Receipt Date: 20080317
  Transmission Date: 20080703
  Serious: Yes (Death, Other)
  Sender: FDA-Public Use
  Company Number: PHHO2008US03797

PATIENT
  Age: 72 Year
  Sex: Male
  Weight: 69.9 kg

DRUGS (13)
  1. MEGACE [Concomitant]
  2. METOPROLOL TARTRATE [Concomitant]
  3. MULTI-VIT [Concomitant]
  4. ALDACTONE [Concomitant]
  5. NIACIN [Concomitant]
  6. RITALIN [Concomitant]
  7. RANITIDINE [Concomitant]
  8. SANDOSTATIN LAR [Suspect]
     Indication: CARCINOID TUMOUR
     Dosage: DOUBLE BLIND
     Route: 048
     Dates: start: 20071211
  9. RAD001 VS PLACEBO [Suspect]
     Indication: CARCINOID TUMOUR
     Dosage: DOUBLE BLIND
     Route: 048
     Dates: start: 20071211
  10. CELEXA [Concomitant]
  11. LOPERAMIDE HCL [Concomitant]
  12. FOLIC ACID [Concomitant]
  13. PREVACID [Concomitant]

REACTIONS (3)
  - DECREASED APPETITE [None]
  - DEHYDRATION [None]
  - SUDDEN DEATH [None]
